FAERS Safety Report 6735456-2 (Version None)
Quarter: 2010Q2

REPORT INFORMATION
  Report Type: 
  Country: None (occurrence: None)
  Receive Date: 20100521
  Receipt Date: 20100517
  Transmission Date: 20101027
  Serious: Yes (Death, Hospitalization)
  Sender: FDA-Public Use
  Company Number: PHHY2010FR07773

PATIENT
  Sex: Male
  Weight: 82 kg

DRUGS (3)
  1. ICL670A ICL+ [Suspect]
     Indication: HAEMOSIDEROSIS
     Dosage: UNK
     Dates: start: 20090302, end: 20090404
  2. MABCAMPATH [Suspect]
     Indication: APLASIA PURE RED CELL
     Dosage: 30 MG, QW
     Dates: start: 20090302
  3. CORTANCYL [Concomitant]
     Dosage: 40 MG DAILY
     Dates: start: 20090302

REACTIONS (4)
  - INFECTION [None]
  - MULTI-ORGAN FAILURE [None]
  - SEPTIC SHOCK [None]
  - TOXOPLASMOSIS [None]
